FAERS Safety Report 8411637 (Version 2)
Quarter: 2014Q2

REPORT INFORMATION
  Report Type: Spontaneous
  Country: US (occurrence: US)
  Receive Date: 20120217
  Receipt Date: 20140513
  Transmission Date: 20141212
  Serious: Yes (Hospitalization)
  Sender: FDA-Public Use
  Company Number: US-US-EMD SERONO, INC.-7112512

PATIENT
  Age: 58 Year
  Sex: Female

DRUGS (1)
  1. REBIF [Suspect]
     Indication: MULTIPLE SCLEROSIS
     Route: 058
     Dates: start: 20081110, end: 20120512

REACTIONS (6)
  - Loss of consciousness [Recovered/Resolved]
  - Musculoskeletal stiffness [Unknown]
  - Osteoporosis [Unknown]
  - Gallbladder disorder [Unknown]
  - Nausea [Unknown]
  - Tooth disorder [Unknown]
